FAERS Safety Report 17271953 (Version 3)
Quarter: 2020Q3

REPORT INFORMATION
  Report Type: Report from Study
  Country: IT (occurrence: IT)
  Receive Date: 20200115
  Receipt Date: 20200313
  Transmission Date: 20201105
  Serious: Yes (Other)
  Sender: FDA-Public Use
  Company Number: IT-JNJFOC-20200104129

PATIENT
  Age: 57 Year
  Sex: Male
  Weight: 93 kg

DRUGS (7)
  1. ONLIPEG [Concomitant]
     Indication: PROPHYLAXIS
     Dates: start: 20191126
  2. ERDAFITINIB. [Suspect]
     Active Substance: ERDAFITINIB
     Indication: TRANSITIONAL CELL CARCINOMA METASTATIC
     Route: 048
     Dates: start: 20191204, end: 20200101
  3. METFORMIN [Concomitant]
     Active Substance: METFORMIN HYDROCHLORIDE
     Indication: HYPERGLYCAEMIA
     Dates: start: 20191202
  4. JNJ?63723283 [Suspect]
     Active Substance: CETRELIMAB
     Indication: TRANSITIONAL CELL CARCINOMA METASTATIC
     Route: 042
     Dates: start: 20191204, end: 20200101
  5. JNJ?63723283 [Suspect]
     Active Substance: CETRELIMAB
     Route: 042
     Dates: start: 20200129
  6. ERDAFITINIB. [Suspect]
     Active Substance: ERDAFITINIB
     Route: 048
     Dates: start: 20200129
  7. ACICLOVIR [Concomitant]
     Active Substance: ACYCLOVIR
     Indication: CONJUNCTIVITIS
     Dates: start: 20191224

REACTIONS (1)
  - Herpes ophthalmic [Recovered/Resolved]

NARRATIVE: CASE EVENT DATE: 20200102
